FAERS Safety Report 9355154 (Version 2)
Quarter: 2013Q3

REPORT INFORMATION
  Report Type: Spontaneous
  Country: NL (occurrence: NL)
  Receive Date: 20130619
  Receipt Date: 20130722
  Transmission Date: 20140515
  Serious: Yes (Death)
  Sender: FDA-Public Use
  Company Number: PHHY2013NL061636

PATIENT
  Sex: Male

DRUGS (1)
  1. DICLOFENAC [Suspect]

REACTIONS (3)
  - Multi-organ failure [Fatal]
  - Sepsis [Fatal]
  - Gastric perforation [Fatal]
